FAERS Safety Report 6592351-X (Version None)
Quarter: 2010Q1

REPORT INFORMATION
  Report Type: 
  Country: None (occurrence: None)
  Receive Date: 20100221
  Receipt Date: 20091007
  Transmission Date: 20100710
  Serious: Yes (Other)
  Sender: FDA-Public Use
  Company Number: US-ALLERGAN-0907257US

PATIENT
  Age: 71 Year
  Sex: Female
  Weight: 56.689 kg

DRUGS (3)
  1. BOTOX [Suspect]
     Indication: TORTICOLLIS
     Dosage: 100 UNITS, SINGLE
     Route: 030
     Dates: start: 20090519, end: 20090519
  2. CRESTOR [Concomitant]
  3. THYROID REPLACEMENT [Concomitant]
     Dosage: UNK

REACTIONS (17)
  - DIZZINESS [None]
  - DYSPHAGIA [None]
  - EYE DISORDER [None]
  - FALL [None]
  - HEAD DISCOMFORT [None]
  - HEART RATE INCREASED [None]
  - HYPOAESTHESIA [None]
  - LOCAL SWELLING [None]
  - MASTICATION DISORDER [None]
  - MUSCULAR WEAKNESS [None]
  - NAUSEA [None]
  - PAIN [None]
  - SPEECH DISORDER [None]
  - TREMOR [None]
  - VISION BLURRED [None]
  - VISUAL ACUITY REDUCED [None]
  - WRONG TECHNIQUE IN DRUG USAGE PROCESS [None]
